FAERS Safety Report 18285492 (Version 7)
Quarter: 2021Q3

REPORT INFORMATION
  Report Type: Spontaneous
  Country: BE (occurrence: BE)
  Receive Date: 20200919
  Receipt Date: 20210727
  Transmission Date: 20211014
  Serious: Yes (Life-Threatening, Hospitalization, Other)
  Sender: FDA-Public Use
  Company Number: BE-AUROBINDO-AUR-APL-2020-048684

PATIENT
  Age: 49 Year
  Sex: Female

DRUGS (7)
  1. L?THYROXIN [Concomitant]
     Active Substance: LEVOTHYROXINE SODIUM
     Indication: PRODUCT USED FOR UNKNOWN INDICATION
     Dosage: 125 MICROGRAM
     Route: 048
     Dates: start: 20200520
  2. NIVOLUMAB [Suspect]
     Active Substance: NIVOLUMAB
     Indication: MALIGNANT MELANOMA
     Dosage: 240 MILLIGRAM
     Route: 042
     Dates: start: 20191016
  3. LYSANXIA [Concomitant]
     Active Substance: PRAZEPAM
     Indication: PRODUCT USED FOR UNKNOWN INDICATION
     Dosage: UNK, DAILY 15 GTT
     Route: 065
  4. PARACETAMOL [Suspect]
     Active Substance: ACETAMINOPHEN
     Indication: PRODUCT USED FOR UNKNOWN INDICATION
     Dosage: UNK
     Route: 065
  5. ALTRIABAK [Concomitant]
     Indication: PRODUCT USED FOR UNKNOWN INDICATION
     Dosage: UNK
     Route: 065
  6. NIVOLUMAB [Suspect]
     Active Substance: NIVOLUMAB
     Dosage: 1/15 D, SOC
     Route: 065
     Dates: start: 20201016
  7. NOBITEN [Concomitant]
     Active Substance: NEBIVOLOL
     Indication: PRODUCT USED FOR UNKNOWN INDICATION
     Dosage: 2.5 MILLIGRAM, DAILY
     Route: 048

REACTIONS (24)
  - Liver disorder [Recovered/Resolved]
  - Abscess limb [Recovered/Resolved]
  - Melanocytic naevus [Recovered/Resolved]
  - Furuncle [Not Recovered/Not Resolved]
  - Mood altered [Not Recovered/Not Resolved]
  - Lymphocele [Not Recovered/Not Resolved]
  - Dry eye [Not Recovered/Not Resolved]
  - Intraocular pressure increased [Recovered/Resolved]
  - Alcohol use [Not Recovered/Not Resolved]
  - Headache [Recovered/Resolved]
  - General physical condition abnormal [Not Recovered/Not Resolved]
  - Intentional overdose [Recovered/Resolved]
  - Aspartate aminotransferase increased [Recovered/Resolved]
  - Liver function test abnormal [Recovered/Resolved]
  - Neck pain [Recovered/Resolved]
  - Fatigue [Not Recovered/Not Resolved]
  - General physical health deterioration [Recovered/Resolved]
  - Alanine aminotransferase increased [Recovered/Resolved]
  - Dry skin [Recovered/Resolved]
  - Constipation [Not Recovered/Not Resolved]
  - Infected seroma [Not Recovered/Not Resolved]
  - Haemorrhoids [Not Recovered/Not Resolved]
  - Dyspepsia [Not Recovered/Not Resolved]
  - Alopecia [Not Recovered/Not Resolved]

NARRATIVE: CASE EVENT DATE: 20191016
